FAERS Safety Report 24613522 (Version 1)
Quarter: 2024Q4

REPORT INFORMATION
  Report Type: Spontaneous
  Country: US (occurrence: US)
  Receive Date: 20241113
  Receipt Date: 20241113
  Transmission Date: 20250114
  Serious: Yes (Other)
  Sender: BRISTOL-MYERS SQUIBB COMPANY
  Company Number: US-BRISTOL-MYERS SQUIBB COMPANY-2024-175607

PATIENT
  Age: 68 Year
  Sex: Female

DRUGS (1)
  1. REVLIMID [Suspect]
     Active Substance: LENALIDOMIDE
     Indication: Plasma cell myeloma
     Dosage: DOSE OR AMOUNT AND FREQUENCY: TAKE 1 CAPSULE BY MOUTH EVERY OTHER DAY FOR 14 DAYS ON THEN 7 DAYS OFF
     Route: 048
     Dates: start: 202403

REACTIONS (1)
  - Seizure [Unknown]
